FAERS Safety Report 9103615 (Version 1)
Quarter: 2013Q1

REPORT INFORMATION
  Report Type: Spontaneous
  Country: TR (occurrence: TR)
  Receive Date: 20130218
  Receipt Date: 20130218
  Transmission Date: 20140127
  Serious: Yes (Other)
  Sender: FDA-Public Use
  Company Number: PHHY2013TR006222

PATIENT
  Age: 79 Year
  Sex: Female

DRUGS (4)
  1. STALEVO [Suspect]
     Indication: PARKINSON^S DISEASE
     Dosage: UNK MG, QID
     Route: 048
     Dates: start: 2006
  2. PARKIPEX [Concomitant]
     Dosage: UNK UKN, UNK
  3. ADELEKS [Concomitant]
     Dosage: UNK UKN, UNK
  4. DRUG THERAPY NOS [Concomitant]
     Indication: PARKINSON^S DISEASE
     Dosage: UNK UKN, UNK
     Route: 048

REACTIONS (4)
  - Intentional drug misuse [Not Recovered/Not Resolved]
  - Wrong technique in drug usage process [Unknown]
  - Dysphagia [Not Recovered/Not Resolved]
  - Tremor [Not Recovered/Not Resolved]
